FAERS Safety Report 7323993-1 (Version None)
Quarter: 2011Q1

REPORT INFORMATION
  Report Type: 
  Country: None (occurrence: None)
  Receive Date: 20110301
  Receipt Date: 20110223
  Transmission Date: 20110831
  Serious: Yes (Hospitalization)
  Sender: FDA-Public Use
  Company Number: CA-B.I. PHARMACEUTICALS,INC./RIDGEFIELD-2011-DE-01331GD

PATIENT

DRUGS (1)
  1. CLONIDINE [Suspect]
     Route: 048

REACTIONS (5)
  - HYPOTENSION [None]
  - HYPERHIDROSIS [None]
  - OVERDOSE [None]
  - HYPOVENTILATION [None]
  - DRUG DISPENSING ERROR [None]
